FAERS Safety Report 11020228 (Version 1)
Quarter: 2015Q2

REPORT INFORMATION
  Report Type: Not Available
  Country: US (occurrence: US)
  Receive Date: 20150413
  Receipt Date: 20150413
  Transmission Date: 20150821
  Serious: No
  Sender: FDA-Public Use
  Company Number: US-LUPIN PHARMACEUTICALS INC.-E2B_00003278

PATIENT
  Age: 61 Year
  Sex: Female
  Weight: 79.45 kg

DRUGS (5)
  1. IRBESARTAN. [Suspect]
     Active Substance: IRBESARTAN
     Indication: HYPERTENSION
     Route: 065
     Dates: start: 20150221, end: 20150226
  2. IRBESARTAN TABLETS USP 150 MG [Suspect]
     Active Substance: IRBESARTAN
     Route: 065
     Dates: start: 20150225
  3. IRBESARTAN. [Suspect]
     Active Substance: IRBESARTAN
     Dates: start: 20150225
  4. ARMOUR THYROID [Concomitant]
     Active Substance: THYROID, PORCINE\THYROID, UNSPECIFIED
     Indication: PRODUCT USED FOR UNKNOWN INDICATION
  5. IRBESARTAN TABLETS USP 150 MG [Suspect]
     Active Substance: IRBESARTAN
     Indication: HYPERTENSION
     Dates: start: 20150221, end: 20150226

REACTIONS (4)
  - Product quality issue [Unknown]
  - Hypersensitivity [Recovered/Resolved]
  - Foreign body [Recovered/Resolved]
  - Dyspepsia [Recovered/Resolved]

NARRATIVE: CASE EVENT DATE: 20150221
